FAERS Safety Report 20411950 (Version 1)
Quarter: 2022Q1

REPORT INFORMATION
  Report Type: Spontaneous
  Country: US (occurrence: US)
  Receive Date: 20220201
  Receipt Date: 20220201
  Transmission Date: 20220423
  Serious: No
  Sender: FDA-Public Use
  Company Number: US-ABBVIE-21K-163-4003475-00

PATIENT
  Age: 67 Year
  Sex: Male

DRUGS (5)
  1. LUPRON [Suspect]
     Active Substance: LEUPROLIDE ACETATE
     Indication: Product used for unknown indication
     Route: 065
     Dates: end: 202105
  2. XTANDI [Suspect]
     Active Substance: ENZALUTAMIDE
     Indication: Prostate cancer stage IV
     Dosage: DURATION 1 MONTH 3 DAYS, 1 TABLET 4 TIMES
     Route: 048
     Dates: start: 20201202, end: 20210104
  3. XTANDI [Suspect]
     Active Substance: ENZALUTAMIDE
     Dosage: 4 CAPSULES ONCE DAILY
     Route: 048
     Dates: start: 20210105, end: 20210302
  4. XTANDI [Suspect]
     Active Substance: ENZALUTAMIDE
     Dosage: 3 CAPSULES ONCE DAILY
     Route: 048
     Dates: start: 20210326
  5. ORGOVYX [Concomitant]
     Active Substance: RELUGOLIX
     Indication: Product used for unknown indication
     Route: 048

REACTIONS (9)
  - Feeling abnormal [Recovered/Resolved]
  - Panic reaction [Recovered/Resolved]
  - Fear [Recovered/Resolved]
  - Inappropriate schedule of product administration [Recovered/Resolved]
  - Vision blurred [Recovered/Resolved]
  - Tinnitus [Recovered/Resolved]
  - Dyspnoea [Recovered/Resolved]
  - Hypertension [Recovering/Resolving]
  - Inappropriate schedule of product administration [Unknown]

NARRATIVE: CASE EVENT DATE: 20201202
